FAERS Safety Report 7882341-9 (Version None)
Quarter: 2011Q4

REPORT INFORMATION
  Report Type: 
  Country: None (occurrence: None)
  Receive Date: 20111101
  Receipt Date: 20110613
  Transmission Date: 20120403
  Serious: No
  Sender: FDA-Public Use
  Company Number: US-AMGEN-USASP2011030394

PATIENT
  Age: 52 Year
  Sex: Female

DRUGS (3)
  1. ENBREL [Suspect]
     Indication: RHEUMATOID ARTHRITIS
     Dosage: 50 MG, QWK
     Dates: start: 20110311, end: 20110611
  2. ENBREL [Suspect]
     Indication: FIBROMYALGIA
  3. ENBREL [Suspect]

REACTIONS (11)
  - NAUSEA [None]
  - HEADACHE [None]
  - CONSTIPATION [None]
  - RHEUMATOID ARTHRITIS [None]
  - HAEMORRHOIDS [None]
  - INJECTION SITE ERYTHEMA [None]
  - DECREASED APPETITE [None]
  - INJECTION SITE SWELLING [None]
  - INJECTION SITE PRURITUS [None]
  - ARTHRALGIA [None]
  - PYREXIA [None]
